FAERS Safety Report 18150990 (Version 1)
Quarter: 2020Q3

REPORT INFORMATION
  Report Type: Report from Study
  Country: IN (occurrence: IN)
  Receive Date: 20200814
  Receipt Date: 20200814
  Transmission Date: 20201103
  Serious: Yes (Death, Hospitalization)
  Sender: FDA-Public Use
  Company Number: IN-MYLANLABS-2020M1071510

PATIENT
  Sex: Female

DRUGS (27)
  1. CARBOPLATIN. [Suspect]
     Active Substance: CARBOPLATIN
     Dosage: UNK
     Route: 042
     Dates: end: 20200715
  2. EMESET [Concomitant]
     Active Substance: ONDANSETRON HYDROCHLORIDE
     Indication: ANTIEMETIC SUPPORTIVE CARE
     Dosage: 40 MG, TDS
     Route: 042
     Dates: start: 20200715, end: 20200715
  3. ATROPINE. [Concomitant]
     Active Substance: ATROPINE
     Indication: PRODUCT USED FOR UNKNOWN INDICATION
     Dosage: UNK
     Dates: start: 20200715, end: 20200715
  4. CARBOPLATIN. [Suspect]
     Active Substance: CARBOPLATIN
     Indication: OVARIAN CANCER METASTATIC
     Dosage: UNK (CYCLE 1, TOTAL DOSE: 203 MG) (DAY 8 (235 MG))
     Route: 042
     Dates: start: 20200630, end: 20200708
  5. APREPITANT. [Concomitant]
     Active Substance: APREPITANT
     Indication: PRODUCT USED FOR UNKNOWN INDICATION
     Dosage: UNK (FOR 02 DAYS)
     Dates: start: 20200630, end: 20200708
  6. PROMETHAZINE [Concomitant]
     Active Substance: PROMETHAZINE HYDROCHLORIDE
     Indication: PRODUCT USED FOR UNKNOWN INDICATION
     Dosage: UNK UNK, BID (BD FOR 02 DAYS)
     Dates: start: 20200630, end: 20200708
  7. VIBACT                             /07716101/ [Concomitant]
     Indication: DIARRHOEA
     Dosage: UNK
     Route: 048
     Dates: start: 20200715, end: 20200715
  8. PANTOPRAZOLE SODIUM. [Concomitant]
     Active Substance: PANTOPRAZOLE SODIUM
     Indication: HYPERCHLORHYDRIA
     Dosage: 40 MILLIGRAM, BID
     Route: 042
     Dates: start: 20200715, end: 20200715
  9. BEVACIZUMAB. [Suspect]
     Active Substance: BEVACIZUMAB
     Indication: OVARIAN CANCER METASTATIC
     Dosage: 15 MILLIGRAM/KILOGRAM, Q3W (1ST CYCLE, TOTAL DOSE 858 MG)
     Route: 042
     Dates: start: 20200630, end: 20200715
  10. APTIVATE [Concomitant]
     Indication: PRODUCT USED FOR UNKNOWN INDICATION
     Dosage: UNK (2 TSF (2 OTHER,FOR 20 DAYS))
  11. DEXORANGE                          /02999001/ [Concomitant]
     Indication: PRODUCT USED FOR UNKNOWN INDICATION
     Dosage: UNK (FOR 20 DAYS)
     Dates: start: 20200630
  12. EMSET [Concomitant]
     Indication: PRODUCT USED FOR UNKNOWN INDICATION
     Dosage: UNK (FOR 02 DAYS)
     Dates: start: 20200630, end: 20200708
  13. PIPERACILLIN AND TAZOBACTAM [Concomitant]
     Active Substance: PIPERACILLIN SODIUM\TAZOBACTAM SODIUM
     Indication: ANTIBIOTIC PROPHYLAXIS
     Dosage: UNK, BID
     Dates: start: 20200715, end: 20200715
  14. GEMCITABINE. [Suspect]
     Active Substance: GEMCITABINE
     Indication: OVARIAN CANCER METASTATIC
     Dosage: UNK (1ST CYCLE, TOTAL DOSE: 1530 MG)
     Route: 042
     Dates: start: 20200630, end: 20200715
  15. ACIVIR                             /00587301/ [Concomitant]
     Indication: PRODUCT USED FOR UNKNOWN INDICATION
     Dosage: UNK, TID (TID FOR 5 DAYS)
  16. O2                                 /03429901/ [Concomitant]
     Indication: ANTIBIOTIC PROPHYLAXIS
     Dosage: UNK UNK, BID
     Route: 048
     Dates: start: 20200713, end: 20200715
  17. FORCAN [Concomitant]
     Indication: ANTIBIOTIC PROPHYLAXIS
     Dosage: UNK
     Route: 048
     Dates: start: 20200713, end: 20200715
  18. AMIKACIN. [Concomitant]
     Active Substance: AMIKACIN
     Indication: ANTIBIOTIC PROPHYLAXIS
     Dosage: 750 MILLIGRAM, QD
     Route: 042
     Dates: start: 20200715, end: 20200715
  19. ADRENALINE                         /00003901/ [Concomitant]
     Active Substance: EPINEPHRINE
     Indication: PRODUCT USED FOR UNKNOWN INDICATION
     Dosage: UNK
     Dates: start: 20200715, end: 20200715
  20. REGLAN [Concomitant]
     Active Substance: METOCLOPRAMIDE HYDROCHLORIDE
     Indication: PRODUCT USED FOR UNKNOWN INDICATION
     Dosage: UNK (FOR 02 DAYS)
     Dates: start: 20200630, end: 20200708
  21. GRAFEEL [Concomitant]
     Dosage: UNK
     Route: 058
     Dates: start: 20200715, end: 20200715
  22. TARGOCID [Concomitant]
     Active Substance: TEICOPLANIN
     Indication: ANTIBIOTIC PROPHYLAXIS
     Dosage: 400 MILLIGRAM, BID
     Route: 042
     Dates: start: 20200715, end: 20200715
  23. REGLAN [Concomitant]
     Active Substance: METOCLOPRAMIDE HYDROCHLORIDE
     Indication: ANTIEMETIC SUPPORTIVE CARE
     Dosage: 10 MILLIGRAM, TID
     Route: 042
     Dates: start: 20200715, end: 20200715
  24. REDOTIL [Concomitant]
     Indication: DIARRHOEA
     Dosage: 100 MILLIGRAM, TID
     Route: 048
     Dates: start: 20200715, end: 20200715
  25. PENTA D [Concomitant]
     Indication: PRODUCT USED FOR UNKNOWN INDICATION
     Dosage: UNK (FOR 20 DAYS)
  26. PRACTIN                            /00042702/ [Concomitant]
     Indication: PRODUCT USED FOR UNKNOWN INDICATION
     Dosage: UNK (FOR 20 DAYS)
  27. GRAFEEL [Concomitant]
     Indication: ANTIANGIOGENIC THERAPY
     Dosage: UNK
     Route: 058
     Dates: start: 20200710, end: 20200712

REACTIONS (2)
  - Cardio-respiratory arrest [Fatal]
  - Neutropenic sepsis [Fatal]
